FAERS Safety Report 4815234-1 (Version None)
Quarter: 2005Q4

REPORT INFORMATION
  Report Type: 
  Country: None (occurrence: None)
  Receive Date: 20051028
  Receipt Date: 20051024
  Transmission Date: 20060501
  Serious: Yes (Death)
  Sender: FDA-Public Use
  Company Number: US-MERCK-0510USA09057

PATIENT
  Sex: Male

DRUGS (3)
  1. VIOXX [Suspect]
     Indication: ARTHRITIS
     Route: 048
     Dates: start: 20001201, end: 20020721
  2. CELEBREX [Suspect]
     Indication: ARTHRITIS
     Route: 065
     Dates: start: 20001201, end: 20010331
  3. BEXTRA [Suspect]
     Route: 065
     Dates: start: 20020901, end: 20030601

REACTIONS (1)
  - MYOCARDIAL INFARCTION [None]
